FAERS Safety Report 8816667 (Version 2)
Quarter: 2012Q4

REPORT INFORMATION
  Report Type: Spontaneous
  Country: US (occurrence: None)
  Receive Date: 20120928
  Receipt Date: 20121108
  Transmission Date: 20130627
  Serious: Yes (Death, Hospitalization)
  Sender: FDA-Public Use
  Company Number: DKLU1084763

PATIENT
  Age: 62 Year
  Sex: Female

DRUGS (3)
  1. SABRIL [Suspect]
     Indication: COMPLEX PARTIAL SEIZURES
     Route: 048
     Dates: start: 20120727
  2. KEPPRA (LEVETIRACE-TAM) [Concomitant]
  3. VIMPAT (LACOSAMIDE) [Concomitant]
     Dates: start: 20120727

REACTIONS (3)
  - Convulsion [None]
  - Tracheostomy [None]
  - Liver transplant [None]
